FAERS Safety Report 4655632-2 (Version None)
Quarter: 2005Q2

REPORT INFORMATION
  Report Type: 
  Country: None (occurrence: None)
  Receive Date: 20050505
  Receipt Date: 20050422
  Transmission Date: 20051028
  Serious: Yes (Hospitalization, Other)
  Sender: FDA-Public Use
  Company Number: KII-2005-0016239

PATIENT
  Age: 28 Year
  Sex: Male

DRUGS (2)
  1. MORPHINE SULFATE [Suspect]
     Dosage: SEE TEXT, ORAL
     Route: 048
  2. BENZODIAZEPINE DERIVATIVES() [Suspect]
     Dosage: ORAL
     Route: 048

REACTIONS (4)
  - MULTIPLE DRUG OVERDOSE [None]
  - OXYGEN SATURATION INCREASED [None]
  - SOMNOLENCE [None]
  - SUICIDE ATTEMPT [None]
